FAERS Safety Report 4405182-3 (Version None)
Quarter: 2004Q3

REPORT INFORMATION
  Report Type: 
  Country: None (occurrence: None)
  Receive Date: 20040722
  Receipt Date: 20040722
  Transmission Date: 20050211
  Serious: Yes (Other)
  Sender: FDA-Public Use
  Company Number: None

PATIENT
  Age: 51 Year
  Sex: Female

DRUGS (1)
  1. ZOLOFT [Suspect]
     Indication: MENOPAUSAL SYMPTOMS
     Dosage: 1 DAILY ORAL
     Route: 048
     Dates: start: 20040619, end: 20040714

REACTIONS (1)
  - TIC [None]
